FAERS Safety Report 18305676 (Version 1)
Quarter: 2020Q3

REPORT INFORMATION
  Report Type: Spontaneous
  Country: US (occurrence: US)
  Receive Date: 20200923
  Receipt Date: 20200923
  Transmission Date: 20201103
  Serious: Yes (Other)
  Sender: FDA-Public Use
  Company Number: US-PURDUE-USA-2020-0167501

PATIENT
  Sex: Female

DRUGS (3)
  1. TRAMADOL. [Suspect]
     Active Substance: TRAMADOL
     Indication: PRODUCT USED FOR UNKNOWN INDICATION
     Dosage: UNKNOWN
     Route: 048
  2. HYDROCODONE BITARTRATE AND ACETAMINOPHEN [Suspect]
     Active Substance: ACETAMINOPHEN\HYDROCODONE BITARTRATE
     Indication: PRODUCT USED FOR UNKNOWN INDICATION
     Dosage: 80 MG, QID
     Route: 048
  3. VICODIN [Suspect]
     Active Substance: ACETAMINOPHEN\HYDROCODONE BITARTRATE
     Indication: PRODUCT USED FOR UNKNOWN INDICATION
     Dosage: 80 MG, QID
     Route: 048

REACTIONS (15)
  - Irritability [Unknown]
  - Anger [Unknown]
  - Contusion [Unknown]
  - Concussion [Unknown]
  - Drug withdrawal syndrome [Unknown]
  - Drug dependence [Unknown]
  - Fall [Unknown]
  - Injury [Unknown]
  - Confusional state [Unknown]
  - Nausea [Unknown]
  - Intestinal polyp [Unknown]
  - Seizure [Unknown]
  - Personality change [Unknown]
  - Memory impairment [Unknown]
  - Head injury [Unknown]
